FAERS Safety Report 16309424 (Version 3)
Quarter: 2019Q2

REPORT INFORMATION
  Report Type: Spontaneous
  Country: DE (occurrence: DE)
  Receive Date: 20190514
  Receipt Date: 20190603
  Transmission Date: 20190711
  Serious: Yes (Life-Threatening, Hospitalization, Other)
  Sender: FDA-Public Use
  Company Number: DE-JNJFOC-20190517055

PATIENT
  Age: 54 Year
  Sex: Female
  Weight: 75 kg

DRUGS (1)
  1. STELARA [Suspect]
     Active Substance: USTEKINUMAB
     Indication: CROHN^S DISEASE
     Route: 058
     Dates: start: 201902, end: 20190417

REACTIONS (6)
  - Syncope [Recovered/Resolved]
  - Tricuspid valve incompetence [Unknown]
  - Colectomy [Unknown]
  - Pulmonary embolism [Recovered/Resolved]
  - Aortic valve incompetence [Unknown]
  - Crohn^s disease [Unknown]

NARRATIVE: CASE EVENT DATE: 20190430
